FAERS Safety Report 9184937 (Version 1)
Quarter: 2013Q1

REPORT INFORMATION
  Report Type: Spontaneous
  Country: US (occurrence: US)
  Receive Date: 20130325
  Receipt Date: 20130325
  Transmission Date: 20140127
  Serious: No
  Sender: FDA-Public Use
  Company Number: US-BRISTOL-MYERS SQUIBB COMPANY-16539785

PATIENT
  Age: 59 Year
  Sex: Female
  Weight: 52.61 kg

DRUGS (1)
  1. ERBITUX [Suspect]
     Indication: COLON CANCER

REACTIONS (3)
  - Nail infection [Unknown]
  - Dry skin [Recovering/Resolving]
  - Rash [Unknown]
